FAERS Safety Report 10178125 (Version 4)
Quarter: 2014Q2

REPORT INFORMATION
  Report Type: Spontaneous
  Country: JP (occurrence: JP)
  Receive Date: 20140519
  Receipt Date: 20140624
  Transmission Date: 20141212
  Serious: Yes (Death, Hospitalization, Disabling)
  Sender: FDA-Public Use
  Company Number: JP-ROCHE-1396908

PATIENT
  Age: 52 Year
  Sex: Male
  Weight: 95 kg

DRUGS (10)
  1. PEGASYS [Suspect]
     Indication: CHRONIC HEPATITIS C
     Route: 058
     Dates: start: 20120402, end: 20131216
  2. PEGASYS [Suspect]
     Route: 058
     Dates: start: 20140310, end: 20140310
  3. PEGASYS [Suspect]
     Route: 058
     Dates: start: 20140317, end: 20140414
  4. COPEGUS [Suspect]
     Indication: CHRONIC HEPATITIS C
     Route: 048
     Dates: start: 20120402, end: 20131216
  5. COPEGUS [Suspect]
     Route: 048
     Dates: start: 20140310, end: 20140409
  6. COPEGUS [Suspect]
     Route: 048
     Dates: start: 20140410, end: 20140416
  7. SOVRIAD [Suspect]
     Indication: CHRONIC HEPATITIS C
     Route: 048
     Dates: start: 20140310, end: 20140421
  8. PARIET [Concomitant]
     Route: 065
     Dates: start: 20140310, end: 20140421
  9. LOXONIN [Concomitant]
     Route: 048
     Dates: start: 20140310, end: 20140421
  10. MEDICON (DEXTROMETHORPHAN HYDROBROMIDE) [Concomitant]
     Route: 048

REACTIONS (8)
  - Pneumonia aspiration [Fatal]
  - Respiratory failure [Fatal]
  - Cerebral haemorrhage [Unknown]
  - Platelet count decreased [Unknown]
  - Aspartate aminotransferase increased [Unknown]
  - Alanine aminotransferase increased [Unknown]
  - Nasopharyngitis [Recovered/Resolved]
  - Pyrexia [Unknown]
